FAERS Safety Report 7943901-X (Version None)
Quarter: 2011Q4

REPORT INFORMATION
  Report Type: 
  Country: None (occurrence: None)
  Receive Date: 20111128
  Receipt Date: 20111117
  Transmission Date: 20120403
  Serious: Yes (Other)
  Sender: FDA-Public Use
  Company Number: AR-ROCHE-1015740

PATIENT
  Sex: Female

DRUGS (1)
  1. LUCENTIS [Suspect]
     Indication: VITREOUS FLOATERS
     Route: 050
     Dates: start: 20110601

REACTIONS (4)
  - CONJUNCTIVITIS [None]
  - LACRIMATION INCREASED [None]
  - VISUAL ACUITY REDUCED [None]
  - DRUG INEFFECTIVE [None]
